FAERS Safety Report 6975857-0 (Version None)
Quarter: 2010Q3

REPORT INFORMATION
  Report Type: 
  Country: None (occurrence: None)
  Receive Date: 20100910
  Receipt Date: 20100830
  Transmission Date: 20110219
  Serious: Yes (Other)
  Sender: FDA-Public Use
  Company Number: US-ELI_LILLY_AND_COMPANY-US201008008799

PATIENT
  Age: 43 Year
  Sex: Male

DRUGS (5)
  1. CYMBALTA [Suspect]
     Indication: DEPRESSION
     Dosage: 60 MG, UNKNOWN
     Dates: start: 20010101
  2. ATENOLOL [Concomitant]
     Dosage: 50 MG, UNK
  3. OMEPRAZOLE [Concomitant]
     Dosage: 20 MG, UNK
  4. LOVAZA [Concomitant]
     Dosage: 1 G, UNK
  5. WELCHOL [Concomitant]
     Dosage: 625 MG, UNK

REACTIONS (2)
  - LIVER FUNCTION TEST ABNORMAL [None]
  - WEIGHT INCREASED [None]
